FAERS Safety Report 6444175-1 (Version None)
Quarter: 2009Q4

REPORT INFORMATION
  Report Type: 
  Country: None (occurrence: None)
  Receive Date: 20091118
  Receipt Date: 20091110
  Transmission Date: 20100525
  Serious: Yes (Other)
  Sender: FDA-Public Use
  Company Number: US-ASTRAZENECA-2006UW11799

PATIENT
  Age: 649 Month
  Sex: Female
  Weight: 109.8 kg

DRUGS (19)
  1. SEROQUEL [Suspect]
     Indication: DEPRESSION
     Route: 048
     Dates: start: 20020201, end: 20020201
  2. SEROQUEL [Suspect]
     Indication: PSYCHOTIC DISORDER
     Route: 048
     Dates: start: 20020201, end: 20020201
  3. SEROQUEL [Suspect]
     Dosage: STRENGTH 100MG, 200MG
     Route: 048
     Dates: start: 20020205
  4. SEROQUEL [Suspect]
     Dosage: STRENGTH 100MG, 200MG
     Route: 048
     Dates: start: 20020205
  5. NAVANE [Concomitant]
  6. ZYPREXA [Concomitant]
  7. FLUOXETINE HCL [Concomitant]
     Dosage: STRENGTH-  20MG, 40MG
     Dates: start: 20010816
  8. TOPROL-XL [Concomitant]
     Dates: start: 20020110
  9. CARTRIA XT [Concomitant]
     Dates: start: 20010302
  10. GLUCOPHAGE [Concomitant]
     Dates: start: 20001001
  11. OXAPROZIN [Concomitant]
     Dates: start: 20011012
  12. FUROSEMIDE [Concomitant]
     Dates: start: 20001102
  13. CAPTOPRIL [Concomitant]
     Dates: start: 20010302
  14. BENZTROPINE MES [Concomitant]
     Dates: start: 20020701
  15. LIPITOR [Concomitant]
     Dates: start: 20001001
  16. ULTRACET [Concomitant]
     Dates: start: 20030521
  17. AVANDIA [Concomitant]
     Dosage: STRENGTH 4-8 MG
     Dates: start: 20001103
  18. NEURONTIN [Concomitant]
     Dates: start: 20040702
  19. SKELAXIN [Concomitant]
     Dosage: STRENGTH- 400 MG, 800 MG.

REACTIONS (6)
  - ABDOMINAL PAIN [None]
  - DEPRESSION [None]
  - DIABETES MELLITUS [None]
  - DIABETES MELLITUS INADEQUATE CONTROL [None]
  - MUSCLE SPASMS [None]
  - NEUROPATHY PERIPHERAL [None]
